FAERS Safety Report 9490407 (Version 2)
Quarter: 2013Q3

REPORT INFORMATION
  Report Type: Spontaneous
  Country: US (occurrence: US)
  Receive Date: 20130830
  Receipt Date: 20130925
  Transmission Date: 20140515
  Serious: No
  Sender: FDA-Public Use
  Company Number: US-009507513-1308USA014675

PATIENT
  Sex: Male

DRUGS (1)
  1. NEXPLANON [Suspect]
     Dosage: 1 STANDARD PACAKGE OF 1 PF APPLICATION
     Route: 059
     Dates: start: 20130828

REACTIONS (2)
  - Injury associated with device [Recovered/Resolved]
  - Product blister packaging issue [Unknown]
